FAERS Safety Report 5951277-2 (Version None)
Quarter: 2008Q4

REPORT INFORMATION
  Report Type: 
  Country: None (occurrence: None)
  Receive Date: 20081022
  Receipt Date: 20080716
  Transmission Date: 20090506
  Serious: No
  Sender: FDA-Public Use
  Company Number: ALL1-2008-02027

PATIENT
  Age: 40 Year
  Sex: Male
  Weight: 99.7913 kg

DRUGS (4)
  1. VYVANSE [Suspect]
     Indication: DEPRESSION
     Dosage: 30 MG, 1X/DAY: QD, ORAL
     Route: 048
     Dates: start: 20080715
  2. SERZONE [Concomitant]
  3. AMBIEN CR [Concomitant]
  4. XANAX [Concomitant]

REACTIONS (2)
  - ERECTILE DYSFUNCTION [None]
  - OFF LABEL USE [None]
